FAERS Safety Report 14375264 (Version 1)
Quarter: 2018Q1

REPORT INFORMATION
  Report Type: Spontaneous
  Country: US (occurrence: US)
  Receive Date: 20180110
  Receipt Date: 20180110
  Transmission Date: 20180509
  Serious: Yes (Disabling)
  Sender: FDA-Public Use
  Company Number: None

PATIENT
  Age: 48 Year
  Sex: Female
  Weight: 58.05 kg

DRUGS (7)
  1. TESTOSTERONE. [Suspect]
     Active Substance: TESTOSTERONE
     Indication: SLEEP DISORDER
     Dosage: QUANTITY:1 PELLET;OTHER FREQUENCY:1 TIME;?
     Route: 058
     Dates: start: 20170420
  2. BIOTIN [Concomitant]
     Active Substance: BIOTIN
  3. IRON [Concomitant]
     Active Substance: IRON
  4. TESTOSTERONE. [Suspect]
     Active Substance: TESTOSTERONE
     Dosage: QUANTITY:1 PELLET;OTHER FREQUENCY:1 TIME;?
     Route: 058
     Dates: start: 20170420
  5. OMEGA 3 [Concomitant]
     Active Substance: OMEGA-3 FATTY ACIDS
  6. TESTOSTERONE. [Suspect]
     Active Substance: TESTOSTERONE
     Indication: NIGHT SWEATS
     Dosage: QUANTITY:1 PELLET;OTHER FREQUENCY:1 TIME;?
     Route: 058
     Dates: start: 20170420
  7. ZINC. [Concomitant]
     Active Substance: ZINC

REACTIONS (10)
  - Hypersexuality [None]
  - Asthma [None]
  - Genital swelling [None]
  - Dysphonia [None]
  - Hair disorder [None]
  - Alopecia [None]
  - Respiratory tract infection [None]
  - Loss of personal independence in daily activities [None]
  - Pruritus [None]
  - Acne [None]

NARRATIVE: CASE EVENT DATE: 20170901
